FAERS Safety Report 25076703 (Version 1)
Quarter: 2025Q1

REPORT INFORMATION
  Report Type: Report from Study
  Country: CA (occurrence: CA)
  Receive Date: 20250313
  Receipt Date: 20250313
  Transmission Date: 20250409
  Serious: Yes (Hospitalization, Other)
  Sender: SANDOZ
  Company Number: CA-SANDOZ-SDZ2024CA026036

PATIENT
  Sex: Male

DRUGS (1)
  1. HYRIMOZ [Suspect]
     Active Substance: ADALIMUMAB-ADAZ
     Indication: Ankylosing spondylitis
     Dosage: 40 MG, BIW
     Route: 058
     Dates: start: 20231211

REACTIONS (3)
  - Urinary tract infection [Recovered/Resolved]
  - Parkinson^s disease [Unknown]
  - Musculoskeletal discomfort [Unknown]
